FAERS Safety Report 9474588 (Version 2)
Quarter: 2013Q3

REPORT INFORMATION
  Report Type: Spontaneous
  Country: US (occurrence: US)
  Receive Date: 20130823
  Receipt Date: 20130911
  Transmission Date: 20140515
  Serious: Yes (Hospitalization)
  Sender: FDA-Public Use
  Company Number: US-GLAXOSMITHKLINE-A1038745A

PATIENT
  Age: 63 Year
  Sex: Male

DRUGS (1)
  1. VOTRIENT [Suspect]
     Indication: LYMPHOMA
     Dosage: 200MG UNKNOWN
     Route: 065

REACTIONS (2)
  - Cholecystectomy [Unknown]
  - Renal surgery [Unknown]
